FAERS Safety Report 24405497 (Version 2)
Quarter: 2025Q1

REPORT INFORMATION
  Report Type: Spontaneous
  Country: CA (occurrence: CA)
  Receive Date: 20241007
  Receipt Date: 20250327
  Transmission Date: 20250409
  Serious: Yes (Life-Threatening, Hospitalization, Other)
  Sender: MYLAN
  Company Number: CA-MYLANLABS-2024M1089977

PATIENT
  Sex: Male
  Weight: 1 kg

DRUGS (6)
  1. SILDENAFIL [Suspect]
     Active Substance: SILDENAFIL
     Indication: Pulmonary arterial hypertension
  2. EPOPROSTENOL SODIUM [Suspect]
     Active Substance: EPOPROSTENOL SODIUM
     Indication: Pulmonary arterial hypertension
  3. BETAMETHASONE [Suspect]
     Active Substance: BETAMETHASONE
     Indication: Abnormal organ maturation
  4. EPINEPHRINE [Suspect]
     Active Substance: EPINEPHRINE
     Indication: Product used for unknown indication
  5. EPOPROSTENOL [Suspect]
     Active Substance: EPOPROSTENOL
     Indication: Pulmonary arterial hypertension
  6. HEPARIN [Suspect]
     Active Substance: HEPARIN SODIUM
     Indication: Product used for unknown indication

REACTIONS (4)
  - Low birth weight baby [Unknown]
  - Foetal exposure during pregnancy [Unknown]
  - Premature delivery [Unknown]
  - Premature baby [Recovered/Resolved]
